FAERS Safety Report 11575661 (Version 1)
Quarter: 2015Q3

REPORT INFORMATION
  Report Type: Spontaneous
  Country: US (occurrence: US)
  Receive Date: 20150916
  Receipt Date: 20150916
  Transmission Date: 20151125
  Serious: No
  Sender: FDA-Public Use
  Company Number: US-ELI_LILLY_AND_COMPANY-US200809000366

PATIENT
  Sex: Female

DRUGS (8)
  1. ZOLOFT [Concomitant]
     Active Substance: SERTRALINE HYDROCHLORIDE
  2. AMBIEN [Concomitant]
     Active Substance: ZOLPIDEM TARTRATE
  3. FORTEO [Suspect]
     Active Substance: TERIPARATIDE
     Dates: start: 2008
  4. IRON [Concomitant]
     Active Substance: IRON
     Route: 042
  5. OXYCODONE [Concomitant]
     Active Substance: OXYCODONE
  6. VITAMINS                           /90003601/ [Concomitant]
     Active Substance: VITAMINS
  7. SERZONE [Concomitant]
     Active Substance: NEFAZODONE HYDROCHLORIDE
  8. KLONOPIN [Concomitant]
     Active Substance: CLONAZEPAM

REACTIONS (4)
  - Feeling abnormal [Not Recovered/Not Resolved]
  - Arthralgia [Not Recovered/Not Resolved]
  - Gait disturbance [Not Recovered/Not Resolved]
  - Dizziness [Not Recovered/Not Resolved]

NARRATIVE: CASE EVENT DATE: 2008
